FAERS Safety Report 8163967-4 (Version None)
Quarter: 2012Q1

REPORT INFORMATION
  Report Type: 
  Country: None (occurrence: None)
  Receive Date: 20120224
  Receipt Date: 20120213
  Transmission Date: 20120608
  Serious: Yes (Death, Life-Threatening)
  Sender: FDA-Public Use
  Company Number: FR-ACTELION-A-CH2012-59468

PATIENT
  Sex: Female
  Weight: 73 kg

DRUGS (6)
  1. LASIX [Concomitant]
  2. TRACLEER [Suspect]
     Indication: SCLERODERMA RENAL CRISIS
     Dosage: 125 MG, BID
     Route: 048
     Dates: start: 20110606, end: 20110822
  3. TRACLEER [Suspect]
     Dosage: 62.5 MG, BID
     Route: 048
     Dates: start: 20110510, end: 20110605
  4. RAMIPRIL [Concomitant]
  5. CLONAZEPAM [Concomitant]
  6. ATARAX [Concomitant]

REACTIONS (7)
  - BACTERIAL SEPSIS [None]
  - DYSPHAGIA [None]
  - KLEBSIELLA SEPSIS [None]
  - COLORECTAL CANCER METASTATIC [None]
  - METASTASES TO LUNG [None]
  - ENTEROCOCCAL INFECTION [None]
  - PNEUMONIA ASPIRATION [None]
